FAERS Safety Report 5633592-5 (Version None)
Quarter: 2008Q1

REPORT INFORMATION
  Report Type: 
  Country: None (occurrence: None)
  Receive Date: 20080221
  Receipt Date: 20080211
  Transmission Date: 20080703
  Serious: Yes (Other)
  Sender: FDA-Public Use
  Company Number: US-PFIZER INC-2008013412

PATIENT
  Sex: Female

DRUGS (4)
  1. LYRICA [Suspect]
     Indication: RADICULOPATHY
  2. ORAL CONTRACEPTIVE NOS [Concomitant]
  3. VITAMIN CAP [Concomitant]
  4. VITAMIN B-12 [Concomitant]

REACTIONS (5)
  - ASTHENIA [None]
  - DRUG INEFFECTIVE [None]
  - SENSORY LOSS [None]
  - SPINAL FUSION SURGERY [None]
  - VITAMIN B12 INCREASED [None]
